FAERS Safety Report 18397282 (Version 1)
Quarter: 2020Q4

REPORT INFORMATION
  Report Type: Spontaneous
  Country: US (occurrence: US)
  Receive Date: 20201017
  Receipt Date: 20201017
  Transmission Date: 20210114
  Serious: Yes (Disabling)
  Sender: FDA-Public Use
  Company Number: None

PATIENT
  Age: 42 Day
  Sex: Female

DRUGS (1)
  1. DICLOFLEX [DICLOFENAC SODIUM] [Suspect]
     Active Substance: DICLOFENAC SODIUM
     Dates: start: 20201016, end: 20201016

REACTIONS (3)
  - Adverse drug reaction [None]
  - Product dispensing issue [None]
  - Prescription drug used without a prescription [None]

NARRATIVE: CASE EVENT DATE: 20201016
